FAERS Safety Report 15343378 (Version 2)
Quarter: 2018Q3

REPORT INFORMATION
  Report Type: Spontaneous
  Country: US (occurrence: US)
  Receive Date: 20180903
  Receipt Date: 20180910
  Transmission Date: 20181010
  Serious: Yes (Life-Threatening, Other)
  Sender: FDA-Public Use
  Company Number: US-DRREDDYS-USA/USA/18/0103664

PATIENT
  Age: 6 Year
  Sex: Female

DRUGS (5)
  1. DOXORUBICIN [Suspect]
     Active Substance: DOXORUBICIN
     Indication: BURKITT^S LYMPHOMA
     Route: 042
  2. PREDNISONE. [Concomitant]
     Active Substance: PREDNISONE
     Dosage: PO Q12 HOURS, DAYS 1?5, FOLLOWED BY TAPER OVER 3 D
  3. CYCLOPHOSPHAMIDE. [Concomitant]
     Active Substance: CYCLOPHOSPHAMIDE
     Indication: BURKITT^S LYMPHOMA
     Dosage: Q12 HOURS?6 DOSES, DAYS 1?3
     Route: 042
  4. VINBLASTINE [Concomitant]
     Active Substance: VINBLASTINE
     Indication: BURKITT^S LYMPHOMA
     Dosage: DAYS 6
     Route: 042
  5. PREDNISONE. [Concomitant]
     Active Substance: PREDNISONE
     Indication: BURKITT^S LYMPHOMA
     Dosage: PO Q12 HOURS, DAYS 1?5, FOLLOWED BY TAPER OVER 3 D
     Route: 048

REACTIONS (4)
  - Pyrexia [Recovered/Resolved]
  - Mucosal inflammation [Recovered/Resolved]
  - Neutropenia [Recovered/Resolved]
  - Toxicity to various agents [Recovered/Resolved]
